FAERS Safety Report 8697404 (Version 3)
Quarter: 2012Q4

REPORT INFORMATION
  Report Type: Report from Study
  Country: EE (occurrence: EE)
  Receive Date: 20120801
  Receipt Date: 20121022
  Transmission Date: 20130627
  Serious: Yes (Hospitalization)
  Sender: FDA-Public Use
  Company Number: EE-BRISTOL-MYERS SQUIBB COMPANY-16828865

PATIENT
  Age: 37 Year
  Sex: Female

DRUGS (1)
  1. ARIPIPRAZOLE IM DEPOT [Suspect]
     Indication: SCHIZOPHRENIA
     Dosage: Therapy on 12Jan12,total:7 inj
     Route: 030
     Dates: start: 20111215, end: 20120629

REACTIONS (1)
  - Schizophrenia [Recovered/Resolved]
